FAERS Safety Report 5206884-1 (Version None)
Quarter: 2006Q4

REPORT INFORMATION
  Report Type: 
  Country: None (occurrence: None)
  Receive Date: 20061030
  Receipt Date: 20060705
  Transmission Date: 20070319
  Serious: No
  Sender: FDA-Public Use
  Company Number: 254932

PATIENT
  Age: 41 Year
  Sex: Female
  Weight: 155 kg

DRUGS (2)
  1. LEVEMIR [Suspect]
     Indication: DIABETES MELLITUS INSULIN-DEPENDENT
     Dosage: 31 IU, QD, SUBCUTANEOUS
     Route: 058
     Dates: start: 20060628, end: 20060705
  2. NOVOFINE 31 (NEEDLE) [Concomitant]

REACTIONS (1)
  - BLOOD GLUCOSE INCREASED [None]
